FAERS Safety Report 16038865 (Version 6)
Quarter: 2020Q1

REPORT INFORMATION
  Report Type: Spontaneous
  Country: ES (occurrence: ES)
  Receive Date: 20190306
  Receipt Date: 20200214
  Transmission Date: 20200409
  Serious: Yes (Hospitalization)
  Sender: FDA-Public Use
  Company Number: PHHY2019ES047394

PATIENT
  Age: 39 Year
  Sex: Female

DRUGS (5)
  1. BARICITINIB [Suspect]
     Active Substance: BARICITINIB
     Dosage: 4 MG, UNKNOWN
     Route: 048
  2. BARICITINIB [Suspect]
     Active Substance: BARICITINIB
     Dosage: 4 MG, UNKNOWN
     Route: 048
     Dates: start: 201808
  3. BARICITINIB [Suspect]
     Active Substance: BARICITINIB
     Dosage: 2 MG, UNKNOWN
     Route: 048
     Dates: start: 20190724
  4. METHOTREXATE. [Suspect]
     Active Substance: METHOTREXATE
     Indication: PRODUCT USED FOR UNKNOWN INDICATION
     Dosage: UNK, UNKNOWN
     Route: 065
  5. BARICITINIB [Suspect]
     Active Substance: BARICITINIB
     Indication: RHEUMATOID ARTHRITIS
     Dosage: 4 MG, UNKNOWN
     Route: 048

REACTIONS (28)
  - Abdominal pain upper [Recovered/Resolved]
  - Chills [Not Recovered/Not Resolved]
  - Abdominal discomfort [Not Recovered/Not Resolved]
  - Irritable bowel syndrome [Unknown]
  - Nausea [Not Recovered/Not Resolved]
  - Pain [Recovered/Resolved]
  - Dyspepsia [Not Recovered/Not Resolved]
  - Gastrointestinal tract irritation [Not Recovered/Not Resolved]
  - Fatigue [Unknown]
  - Malaise [Unknown]
  - Nausea [Recovered/Resolved]
  - Peripheral swelling [Unknown]
  - Muscle spasms [Unknown]
  - Rheumatoid arthritis [Not Recovered/Not Resolved]
  - Vomiting [Unknown]
  - Diarrhoea [Unknown]
  - Malaise [Not Recovered/Not Resolved]
  - Pancreatitis [Recovered/Resolved]
  - Feeling abnormal [Unknown]
  - Gastric disorder [Recovering/Resolving]
  - Abdominal pain [Unknown]
  - Diarrhoea [Unknown]
  - Epigastric discomfort [Recovered/Resolved]
  - Tremor [Unknown]
  - Viral infection [Unknown]
  - Pain in extremity [Unknown]
  - Burning sensation [Recovered/Resolved]
  - Anxiety [Recovering/Resolving]

NARRATIVE: CASE EVENT DATE: 201902
